FAERS Safety Report 10159448 (Version 2)
Quarter: 2014Q2

REPORT INFORMATION
  Report Type: Spontaneous
  Country: US (occurrence: US)
  Receive Date: 20140508
  Receipt Date: 20140508
  Transmission Date: 20141212
  Serious: Yes (Death)
  Sender: FDA-Public Use
  Company Number: US-SA-2014SA029184

PATIENT
  Age: 86 Year
  Sex: Male

DRUGS (1)
  1. CEREZYME [Suspect]
     Indication: GAUCHER^S DISEASE
     Dosage: FREQUENCY: EVERY 5 WEEKS DOSE:2000 UNIT(S)
     Route: 042
     Dates: start: 1995

REACTIONS (2)
  - Death [Fatal]
  - Back disorder [Not Recovered/Not Resolved]
